FAERS Safety Report 19212096 (Version 3)
Quarter: 2021Q3

REPORT INFORMATION
  Report Type: Other
  Country: CA (occurrence: CA)
  Receive Date: 20210504
  Receipt Date: 20210806
  Transmission Date: 20211014
  Serious: Yes (Other)
  Sender: FDA-Public Use
  Company Number: CA-CHIESI-2021CHF02134

PATIENT
  Age: 15 Year
  Sex: Male
  Weight: 56.3 kg

DRUGS (1)
  1. FERRIPROX [Suspect]
     Active Substance: DEFERIPRONE
     Indication: OVERCHELATION
     Dosage: UNK UNK, BID
     Route: 048
     Dates: start: 20190315, end: 20200521

REACTIONS (6)
  - Aspartate aminotransferase increased [Recovered/Resolved]
  - Liver iron concentration abnormal [Recovered/Resolved]
  - Serum ferritin abnormal [Recovered/Resolved]
  - Drug ineffective [Recovered/Resolved]
  - Serum ferritin increased [Recovered/Resolved]
  - Alanine aminotransferase increased [Recovered/Resolved]

NARRATIVE: CASE EVENT DATE: 20210521
